FAERS Safety Report 6795563-5 (Version None)
Quarter: 2010Q2

REPORT INFORMATION
  Report Type: 
  Country: None (occurrence: None)
  Receive Date: 20100625
  Receipt Date: 20100618
  Transmission Date: 20101027
  Serious: Yes (Hospitalization)
  Sender: FDA-Public Use
  Company Number: NL-AMGEN-QUU419422

PATIENT
  Sex: Female

DRUGS (3)
  1. NEULASTA [Suspect]
     Indication: CHEMOTHERAPY
     Route: 058
     Dates: start: 20100528
  2. UNSPECIFIED ANTINEOPLASTIC AGENT [Concomitant]
  3. UNSPECIFIED ANTIEMETIC [Concomitant]

REACTIONS (2)
  - BONE PAIN [None]
  - GASTROINTESTINAL INFECTION [None]
